FAERS Safety Report 7967849-X (Version None)
Quarter: 2011Q4

REPORT INFORMATION
  Report Type: 
  Country: None (occurrence: None)
  Receive Date: 20111209
  Receipt Date: 20101217
  Transmission Date: 20120403
  Serious: Yes (Other)
  Sender: FDA-Public Use
  Company Number: US-B.I. PHARMACEUTICALS,INC./RIDGEFIELD-2010-BP-14853PF

PATIENT
  Sex: Female

DRUGS (6)
  1. SILDENAFIL CITRATE [Suspect]
     Route: 048
  2. SPIRIVA [Suspect]
     Route: 065
  3. POTASSIUM ACETATE [Concomitant]
     Route: 065
  4. WATER PILL [Concomitant]
     Route: 065
  5. WARFARIN SODIUM [Suspect]
     Route: 065
  6. ALLOPURINOL [Suspect]
     Route: 065

REACTIONS (9)
  - HAEMOPTYSIS [None]
  - NAUSEA [None]
  - GOUT [None]
  - DYSGEUSIA [None]
  - DYSPNOEA [None]
  - EPISTAXIS [None]
  - PARAESTHESIA [None]
  - CARPAL TUNNEL SYNDROME [None]
  - HYPOAESTHESIA [None]
